FAERS Safety Report 4341180-6 (Version None)
Quarter: 2004Q2

REPORT INFORMATION
  Report Type: 
  Country: None (occurrence: None)
  Receive Date: 20040419
  Receipt Date: 20040408
  Transmission Date: 20050107
  Serious: Yes (Hospitalization)
  Sender: FDA-Public Use
  Company Number: FR-BRISTOL-MYERS SQUIBB COMPANY-12556296

PATIENT
  Age: 85 Year
  Sex: Female
  Weight: 80 kg

DRUGS (8)
  1. APROVEL TABS 150 MG [Suspect]
     Route: 048
     Dates: end: 20040228
  2. OFLOCET [Suspect]
     Indication: URINARY TRACT INFECTION
     Route: 048
     Dates: start: 20040227, end: 20040228
  3. TEGELINE [Suspect]
     Dosage: RX INITIALLY PLANNED FOR 4 DAYS, BUT DURATION WAS ONLY 3 DAYS.
     Route: 042
     Dates: start: 20040224, end: 20040226
  4. PREVISCAN [Suspect]
     Route: 048
  5. LASILIX FAIBLE [Suspect]
     Route: 048
     Dates: end: 20040227
  6. NITROGLYCERIN [Concomitant]
  7. ALDACTONE [Concomitant]
     Route: 048
     Dates: end: 20040227
  8. PRIMPERAN INJ [Concomitant]
     Dates: start: 20040225, end: 20040301

REACTIONS (4)
  - METABOLIC ACIDOSIS [None]
  - POLYMYOSITIS [None]
  - RENAL FAILURE ACUTE [None]
  - URINARY TRACT INFECTION [None]
